FAERS Safety Report 7361580-X (Version None)
Quarter: 2011Q1

REPORT INFORMATION
  Report Type: 
  Country: None (occurrence: None)
  Receive Date: 20110318
  Receipt Date: 20110316
  Transmission Date: 20110831
  Serious: Yes (Other)
  Sender: FDA-Public Use
  Company Number: CN-PFIZER INC-2011057183

PATIENT
  Sex: Male

DRUGS (1)
  1. LIPITOR [Suspect]
     Dosage: UNK
     Route: 048
     Dates: start: 20100101

REACTIONS (3)
  - TRANSIENT ISCHAEMIC ATTACK [None]
  - GINGIVAL BLEEDING [None]
  - AMAUROSIS FUGAX [None]
